FAERS Safety Report 20710398 (Version 2)
Quarter: 2022Q3

REPORT INFORMATION
  Report Type: Spontaneous
  Country: DE (occurrence: DE)
  Receive Date: 20220414
  Receipt Date: 20220707
  Transmission Date: 20221027
  Serious: Yes (Life-Threatening, Other)
  Sender: FDA-Public Use
  Company Number: DE-PFM-2022-02059

PATIENT
  Age: 70 Year
  Sex: Male

DRUGS (6)
  1. CISPLATIN [Suspect]
     Active Substance: CISPLATIN
     Indication: Metastases to lymph nodes
     Dosage: UNK
     Route: 065
  2. CISPLATIN [Suspect]
     Active Substance: CISPLATIN
     Indication: Lung squamous cell carcinoma metastatic
     Dosage: UNK, CYCLE (RECEIVED 2 CYCLES)
     Route: 065
  3. VINORELBINE [Suspect]
     Active Substance: VINORELBINE TARTRATE
     Indication: Metastases to lymph nodes
     Dosage: UNK
     Route: 065
  4. VINORELBINE [Suspect]
     Active Substance: VINORELBINE TARTRATE
     Indication: Lung squamous cell carcinoma metastatic
     Dosage: UNK, CYCLE, (RECEIVED 2 CYCLES)
     Route: 065
  5. DURVALUMAB [Suspect]
     Active Substance: DURVALUMAB
     Indication: Lung squamous cell carcinoma metastatic
     Dosage: UNK
     Route: 065
  6. DURVALUMAB [Suspect]
     Active Substance: DURVALUMAB
     Dosage: UNK, CYCLE (2 CYCLES)
     Route: 065

REACTIONS (1)
  - Pneumonitis [Recovering/Resolving]
